FAERS Safety Report 9775255 (Version 2)
Quarter: 2014Q2

REPORT INFORMATION
  Report Type: Spontaneous
  Country: US (occurrence: US)
  Receive Date: 20131220
  Receipt Date: 20140619
  Transmission Date: 20141212
  Serious: No
  Sender: FDA-Public Use
  Company Number: US-GILEAD-2013-0090254

PATIENT
  Age: 84 Year
  Sex: Female
  Weight: 72.56 kg

DRUGS (12)
  1. LETAIRIS [Suspect]
     Indication: PULMONARY HYPERTENSION
     Dosage: 5 MG, QD
     Route: 048
     Dates: start: 20131114, end: 20131127
  2. LETAIRIS [Suspect]
     Indication: PULMONARY EMBOLISM
  3. ALBUTEROL                          /00139501/ [Concomitant]
  4. ATENOLOL [Concomitant]
  5. PRAVASTATIN [Concomitant]
  6. WARFARIN [Concomitant]
  7. SILDENAFIL [Concomitant]
  8. FUROSEMIDE [Concomitant]
  9. DULERA [Concomitant]
  10. TRAZODONE [Concomitant]
  11. OXYGEN [Concomitant]
     Dosage: 3.5 L/MIN, UNK
  12. OXYGEN [Concomitant]
     Dosage: 5 L/MIN, UNK

REACTIONS (3)
  - Oxygen consumption increased [Unknown]
  - Fatigue [Unknown]
  - Oedema peripheral [Unknown]
